FAERS Safety Report 18868074 (Version 1)
Quarter: 2021Q1

REPORT INFORMATION
  Report Type: Spontaneous
  Country: US (occurrence: US)
  Receive Date: 20210209
  Receipt Date: 20210209
  Transmission Date: 20210420
  Serious: Yes (Other)
  Sender: FDA-Public Use
  Company Number: US-BAYER-2021-050562

PATIENT
  Age: 76 Year
  Sex: Male

DRUGS (6)
  1. VITAMIN D [VITAMIN D NOS] [Concomitant]
     Active Substance: VITAMIN D NOS
     Dosage: UNK
  2. BAYER LOW DOSE [Suspect]
     Active Substance: ASPIRIN
     Dosage: UNK
     Dates: start: 20200710
  3. ENZALUTAMIDE [Suspect]
     Active Substance: ENZALUTAMIDE
     Indication: PRODUCT USED FOR UNKNOWN INDICATION
     Dosage: 2 DF, QD
  4. ATORVASTATIN [Concomitant]
     Active Substance: ATORVASTATIN
     Dosage: 20 MG
     Dates: start: 20200710
  5. METOPROLOL. [Concomitant]
     Active Substance: METOPROLOL
     Dosage: UNK
  6. ENZALUTAMIDE [Suspect]
     Active Substance: ENZALUTAMIDE
     Indication: PRODUCT USED FOR UNKNOWN INDICATION
     Dosage: 120 MG, QD
     Dates: start: 20170429, end: 20200710

REACTIONS (12)
  - Haematuria [Recovered/Resolved]
  - Haematuria [Recovered/Resolved]
  - Vision blurred [Recovered/Resolved]
  - Cataract [Recovered/Resolved]
  - Dysphonia [Recovered/Resolved]
  - Constipation [Recovered/Resolved]
  - Diarrhoea [None]
  - Back pain [Recovered/Resolved]
  - Vision blurred [Not Recovered/Not Resolved]
  - Blood pressure increased [None]
  - Rash [Not Recovered/Not Resolved]
  - Disorientation [None]

NARRATIVE: CASE EVENT DATE: 201703
